FAERS Safety Report 5984285-6 (Version None)
Quarter: 2008Q4

REPORT INFORMATION
  Report Type: 
  Country: None (occurrence: None)
  Receive Date: 20081208
  Receipt Date: 20080311
  Transmission Date: 20090506
  Serious: No
  Sender: FDA-Public Use
  Company Number: US-AMGEN-KDL269222

PATIENT
  Sex: Female
  Weight: 111.36 kg

DRUGS (2)
  1. ENBREL [Suspect]
     Indication: RHEUMATOID ARTHRITIS
     Route: 058
  2. HUMIRA [Concomitant]
     Route: 058
     Dates: start: 20061201, end: 20071221

REACTIONS (3)
  - DRUG INEFFECTIVE [None]
  - INDURATION [None]
  - PAIN [None]
